FAERS Safety Report 7290983-7 (Version None)
Quarter: 2011Q1

REPORT INFORMATION
  Report Type: 
  Country: None (occurrence: None)
  Receive Date: 20110214
  Receipt Date: 20110131
  Transmission Date: 20110831
  Serious: Yes (Other)
  Sender: FDA-Public Use
  Company Number: FR-ACTELION-A-CH2011-44731

PATIENT
  Age: 29 Year
  Sex: Male

DRUGS (1)
  1. ZAVESCA [Suspect]
     Indication: GAUCHER'S DISEASE
     Dosage: 100 MG, QID
     Route: 048

REACTIONS (4)
  - STATUS EPILEPTICUS [None]
  - EPILEPSY [None]
  - CONDITION AGGRAVATED [None]
  - NEUROLOGICAL DECOMPENSATION [None]
